FAERS Safety Report 20602561 (Version 1)
Quarter: 2022Q1

REPORT INFORMATION
  Report Type: Spontaneous
  Country: US (occurrence: US)
  Receive Date: 20220316
  Receipt Date: 20220316
  Transmission Date: 20220423
  Serious: No
  Sender: FDA-Public Use
  Company Number: US-GW PHARMA-202203USGW01247

PATIENT
  Sex: Male
  Weight: 54.875 kg

DRUGS (2)
  1. EPIDIOLEX [Suspect]
     Active Substance: CANNABIDIOL
     Indication: Epilepsy
     Dosage: 18.22 MG/KG/DAY, 500 MILLIGRAM, BID
     Route: 048
     Dates: start: 20190122
  2. EPIDIOLEX [Suspect]
     Active Substance: CANNABIDIOL
     Indication: Epilepsy

REACTIONS (4)
  - Intestinal obstruction [Unknown]
  - Infection [Unknown]
  - Product dose omission issue [Unknown]
  - Product use in unapproved indication [Unknown]
